FAERS Safety Report 8091443-6 (Version None)
Quarter: 2012Q1

REPORT INFORMATION
  Report Type: 
  Country: None (occurrence: None)
  Receive Date: 20120129
  Receipt Date: 20111105
  Transmission Date: 20120608
  Serious: No
  Sender: FDA-Public Use
  Company Number: US-ABBOTT-11P-163-0871639-00

PATIENT
  Age: 29 Year
  Sex: Female

DRUGS (4)
  1. ALBUTEROL [Concomitant]
     Indication: ASTHMA
  2. HUMIRA [Suspect]
     Indication: PSORIASIS
     Dates: start: 20110601
  3. ZYRTEC [Concomitant]
     Indication: SEASONAL ALLERGY
     Dosage: DAILY
  4. ADVAIR DISKUS 100/50 [Concomitant]
     Indication: ASTHMA
     Dosage: DISC INHALER GREEN LABEL

REACTIONS (2)
  - INJECTION SITE PAIN [None]
  - INJECTION SITE HAEMORRHAGE [None]
